FAERS Safety Report 6566530-1 (Version None)
Quarter: 2010Q1

REPORT INFORMATION
  Report Type: 
  Country: None (occurrence: None)
  Receive Date: 20100202
  Receipt Date: 20100126
  Transmission Date: 20100710
  Serious: Yes (Other)
  Sender: FDA-Public Use
  Company Number: US-ASTRAZENECA-2010SE03443

PATIENT
  Age: 55 Year
  Sex: Female

DRUGS (4)
  1. TOPROL-XL [Suspect]
     Route: 048
  2. TOPROL-XL [Suspect]
     Route: 048
     Dates: start: 20091113
  3. PEGASYS [Suspect]
     Indication: HEPATITIS C
     Dates: start: 20091113
  4. COPEGUS [Suspect]
     Indication: HEPATITIS C
     Dosage: 800 MG IN DIVIDED DOSE
     Route: 048
     Dates: start: 20091113

REACTIONS (5)
  - DRY SKIN [None]
  - HEART RATE INCREASED [None]
  - LOSS OF CONSCIOUSNESS [None]
  - PAIN [None]
  - PALPITATIONS [None]
